FAERS Safety Report 10839228 (Version 1)
Quarter: 2015Q1

REPORT INFORMATION
  Report Type: Report from Study
  Country: US (occurrence: US)
  Receive Date: 20150220
  Receipt Date: 20150220
  Transmission Date: 20150721
  Serious: Yes (Other)
  Sender: FDA-Public Use
  Company Number: US-ABBVIE-14P-163-1253392-00

PATIENT
  Age: 58 Year
  Sex: Male
  Weight: 83.54 kg

DRUGS (6)
  1. HUMIRA [Suspect]
     Active Substance: ADALIMUMAB
     Route: 058
     Dates: start: 2011, end: 2011
  2. HUMIRA [Suspect]
     Active Substance: ADALIMUMAB
     Route: 058
     Dates: start: 2011, end: 201312
  3. HUMIRA [Suspect]
     Active Substance: ADALIMUMAB
     Dates: start: 20140619, end: 20140619
  4. HUMIRA [Suspect]
     Active Substance: ADALIMUMAB
     Dates: start: 20140626
  5. HUMIRA [Suspect]
     Active Substance: ADALIMUMAB
     Dosage: UNKNOWN FREQUENCY
     Route: 058
     Dates: start: 20140620
  6. HUMIRA [Suspect]
     Active Substance: ADALIMUMAB
     Indication: CROHN^S DISEASE
     Dates: start: 2011, end: 2011

REACTIONS (8)
  - Crohn^s disease [Recovering/Resolving]
  - Aspartate aminotransferase increased [Recovered/Resolved]
  - Dysphonia [Recovered/Resolved]
  - Cholelithiasis [Recovered/Resolved]
  - Abdominal pain upper [Not Recovered/Not Resolved]
  - Abdominal pain [Recovered/Resolved]
  - Sinusitis [Recovered/Resolved]
  - Abscess intestinal [Recovering/Resolving]

NARRATIVE: CASE EVENT DATE: 201308
